FAERS Safety Report 23259296 (Version 1)
Quarter: 2023Q4

REPORT INFORMATION
  Report Type: Spontaneous
  Country: US (occurrence: US)
  Receive Date: 20231204
  Receipt Date: 20231204
  Transmission Date: 20240110
  Serious: No
  Sender: FDA-Public Use
  Company Number: US-ABBVIE-5522606

PATIENT
  Age: 36 Year
  Sex: Male
  Weight: 62.142 kg

DRUGS (3)
  1. HUMIRA [Suspect]
     Active Substance: ADALIMUMAB
     Indication: Hidradenitis
     Dosage: FORM STRENGTH: 80
     Route: 058
     Dates: start: 202309
  2. BUPROPION [Concomitant]
     Active Substance: BUPROPION
     Indication: Depression
  3. Vintix [Concomitant]
     Indication: Depression

REACTIONS (1)
  - Injection site haemorrhage [Recovered/Resolved]

NARRATIVE: CASE EVENT DATE: 20231128
